FAERS Safety Report 17026409 (Version 1)
Quarter: 2019Q4

REPORT INFORMATION
  Report Type: Spontaneous
  Country: US (occurrence: US)
  Receive Date: 20191009
  Receipt Date: 20191009
  Transmission Date: 20200122
  Serious: No
  Sender: FDA-Public Use
  Company Number: None

PATIENT
  Age: 50 Year
  Sex: Female

DRUGS (1)
  1. BOTOX [Suspect]
     Active Substance: ONABOTULINUMTOXINA
     Indication: MIGRAINE
     Route: 030
     Dates: start: 20190516

REACTIONS (6)
  - Dizziness [None]
  - Fall [None]
  - Inappropriate schedule of product administration [None]
  - Migraine [None]
  - Head injury [None]
  - Nausea [None]

NARRATIVE: CASE EVENT DATE: 20190930
